FAERS Safety Report 4603705-2 (Version None)
Quarter: 2005Q1

REPORT INFORMATION
  Report Type: 
  Country: None (occurrence: None)
  Receive Date: 20050310
  Receipt Date: 20050301
  Transmission Date: 20050727
  Serious: Yes (Other)
  Sender: FDA-Public Use
  Company Number: GB-BRISTOL-MYERS SQUIBB COMPANY-12880670

PATIENT
  Age: 95 Year
  Sex: Female
  Weight: 61 kg

DRUGS (4)
  1. IRBESARTAN [Suspect]
     Indication: CARDIAC FAILURE
     Route: 048
     Dates: start: 20041112, end: 20041115
  2. SOTALOL HCL [Suspect]
     Indication: ATRIAL FIBRILLATION
     Route: 048
     Dates: start: 20041112, end: 20041115
  3. FLUCLOXACILLIN [Concomitant]
     Indication: CELLULITIS
     Route: 042
     Dates: start: 20041108, end: 20041111
  4. BENZYLPENICILLIN [Concomitant]
     Indication: CELLULITIS
     Route: 042
     Dates: start: 20041108, end: 20041111

REACTIONS (7)
  - BLOOD CREATININE INCREASED [None]
  - BLOOD IMMUNOGLOBULIN E INCREASED [None]
  - BLOOD UREA INCREASED [None]
  - EOSINOPHIL COUNT INCREASED [None]
  - PLATELET COUNT DECREASED [None]
  - PRURITUS [None]
  - RASH ERYTHEMATOUS [None]
